FAERS Safety Report 4672572-3 (Version None)
Quarter: 2005Q2

REPORT INFORMATION
  Report Type: 
  Country: None (occurrence: None)
  Receive Date: 20050524
  Receipt Date: 20050520
  Transmission Date: 20051028
  Serious: Yes (Hospitalization)
  Sender: FDA-Public Use
  Company Number: US-GLAXOSMITHKLINE-A0559583A

PATIENT
  Age: 47 Year
  Sex: Female

DRUGS (10)
  1. PAXIL [Suspect]
     Dosage: 160MG PER DAY
     Route: 048
     Dates: start: 20010201
  2. KLONOPIN [Concomitant]
  3. RISPERIDONE [Concomitant]
  4. COGENTIN [Concomitant]
  5. ZOCOR [Concomitant]
  6. PROTONIX [Concomitant]
  7. NEURONTIN [Concomitant]
  8. ERYTHROMYCIN [Concomitant]
  9. ALLEGRA [Concomitant]
  10. CYTOMEL [Concomitant]

REACTIONS (2)
  - AMNESIA [None]
  - PRESCRIBED OVERDOSE [None]
